FAERS Safety Report 5035727-4 (Version None)
Quarter: 2006Q2

REPORT INFORMATION
  Report Type: 
  Country: None (occurrence: None)
  Receive Date: 20060627
  Receipt Date: 20060207
  Transmission Date: 20061013
  Serious: Yes (Hospitalization)
  Sender: FDA-Public Use
  Company Number: JP-AVENTIS-200610428JP

PATIENT
  Age: 67 Year
  Sex: Female

DRUGS (9)
  1. AMARYL [Suspect]
     Indication: DIABETES MELLITUS NON-INSULIN-DEPENDENT
     Route: 048
     Dates: start: 20060204, end: 20060206
  2. MICARDIS [Concomitant]
     Indication: HYPERTENSION
     Route: 048
  3. NORVASC [Concomitant]
     Indication: HYPERTENSION
     Route: 048
  4. OMEPRAL [Concomitant]
     Indication: GASTRIC ULCER
     Route: 048
  5. SELBEX [Concomitant]
     Indication: GASTRIC ULCER
     Route: 048
  6. GASMOTIN [Concomitant]
     Indication: GASTRIC ULCER
     Route: 048
  7. ADALAT [Concomitant]
     Indication: HYPERTENSION
     Route: 048
  8. PLETAL [Concomitant]
     Indication: CEREBRAL THROMBOSIS
     Route: 048
  9. PURSENNID [Concomitant]
     Indication: CONSTIPATION
     Dosage: DOSE: 2 TABLETS
     Route: 048

REACTIONS (1)
  - HYPOGLYCAEMIC COMA [None]
